FAERS Safety Report 7247817-6 (Version None)
Quarter: 2011Q1

REPORT INFORMATION
  Report Type: 
  Country: None (occurrence: None)
  Receive Date: 20110127
  Receipt Date: 20110121
  Transmission Date: 20110831
  Serious: Yes (Hospitalization)
  Sender: FDA-Public Use
  Company Number: HU-PFIZER INC-2011015344

PATIENT
  Age: 56 Year
  Sex: Male
  Weight: 60 kg

DRUGS (10)
  1. ALPRAZOLAM [Concomitant]
     Dosage: UNK
  2. PENTOSANPOLYSULFAT SP 54 [Concomitant]
     Dosage: UNK
  3. TRANSTEC TTS [Concomitant]
     Dosage: UNK
     Route: 062
  4. MEGESTROL [Concomitant]
     Dosage: UNK
  5. ACCUZIDE [Concomitant]
     Dosage: UNK
  6. DICLAC [Concomitant]
     Dosage: UNK
  7. CHINOTAL [Concomitant]
     Dosage: UNK
  8. QUAMATEL [Concomitant]
     Dosage: UNK
  9. SUTENT [Suspect]
     Indication: METASTATIC RENAL CELL CARCINOMA
     Dosage: UNK
     Route: 048
     Dates: start: 20100305
  10. NOACID [Concomitant]
     Dosage: UNK

REACTIONS (3)
  - HYPERTENSIVE CRISIS [None]
  - ASTHENIA [None]
  - CONDITION AGGRAVATED [None]
